FAERS Safety Report 19141358 (Version 5)
Quarter: 2023Q1

REPORT INFORMATION
  Report Type: Spontaneous
  Country: FR (occurrence: FR)
  Receive Date: 20210415
  Receipt Date: 20230127
  Transmission Date: 20230418
  Serious: Yes (Disabling)
  Sender: FDA-Public Use
  Company Number: FR-SA-SAC20210414000044

PATIENT
  Age: 20 Year
  Sex: Female
  Weight: 46 kg

DRUGS (6)
  1. KEVZARA [Suspect]
     Active Substance: SARILUMAB
     Indication: Rheumatoid arthritis
     Dosage: 200 MG, QOW
     Dates: start: 20210308
  2. PANTOPRAZOLE [Suspect]
     Active Substance: PANTOPRAZOLE
     Indication: Abdominal pain upper
     Dosage: 1 DF, QD;1/DAY 3 TO 4 DAYS
     Route: 048
     Dates: start: 200211
  3. ETHINYL ESTRADIOL\LEVONORGESTREL [Suspect]
     Active Substance: ETHINYL ESTRADIOL\LEVONORGESTREL
     Indication: Contraception
     Dosage: 1 DF, QD
     Route: 048
     Dates: start: 201810
  4. PIROXICAM BETADEX [Suspect]
     Active Substance: PIROXICAM BETADEX
     Indication: Pain
     Dosage: 1 DF; 1 DF, 3 TO 5 DAYS
     Route: 048
     Dates: start: 202011
  5. METHYLPREDNISOLONE [Concomitant]
     Active Substance: METHYLPREDNISOLONE
     Dosage: UNK
  6. PIROXICAM BETADEX [Concomitant]
     Active Substance: PIROXICAM BETADEX
     Indication: Pain
     Dosage: 1 DF;3 TO 5 DAYS
     Route: 048
     Dates: start: 202011

REACTIONS (7)
  - Mobility decreased [Recovered/Resolved]
  - Pain in extremity [Recovered/Resolved]
  - Mouth ulceration [Not Recovered/Not Resolved]
  - Aphthous ulcer [Not Recovered/Not Resolved]
  - Injection site oedema [Recovered/Resolved]
  - Injection site swelling [Recovered/Resolved]
  - Injection site erythema [Unknown]
